FAERS Safety Report 4895883-5 (Version None)
Quarter: 2006Q1

REPORT INFORMATION
  Report Type: 
  Country: None (occurrence: None)
  Receive Date: 20060125
  Receipt Date: 20060112
  Transmission Date: 20060701
  Serious: Yes (Other)
  Sender: FDA-Public Use
  Company Number: 2006007686

PATIENT
  Sex: Male

DRUGS (2)
  1. PYRIDIUM                 (PHENAZOPRYIDINE HYDROCHLORIDE) [Suspect]
     Indication: DYSURIA
     Dosage: 400 MG (200 MG, 2 IN 1 D), ORAL
     Route: 048
     Dates: start: 20050601, end: 20050601
  2. ALL OTHER THERAPEUTIC PRODUCTS (ALL OTHER THERAPEUTIC PRODUCTS) [Concomitant]

REACTIONS (2)
  - RENAL STONE REMOVAL [None]
  - TREATMENT NONCOMPLIANCE [None]
